FAERS Safety Report 7443233-2 (Version None)
Quarter: 2011Q2

REPORT INFORMATION
  Report Type: 
  Country: None (occurrence: None)
  Receive Date: 20110428
  Receipt Date: 20110419
  Transmission Date: 20111010
  Serious: Yes (Disabling)
  Sender: FDA-Public Use
  Company Number: B0714899A

PATIENT
  Sex: Female
  Weight: 8.6 kg

DRUGS (10)
  1. FLUDARA [Suspect]
     Indication: STEM CELL TRANSPLANT
     Dosage: 30MGM2 PER DAY
     Route: 042
     Dates: start: 20041103, end: 20041106
  2. KYTRIL [Concomitant]
     Dosage: 3MG PER DAY
     Route: 042
     Dates: end: 20041110
  3. FUROSEMIDE [Concomitant]
     Dosage: 5MG PER DAY
     Route: 042
     Dates: end: 20041221
  4. ALKERAN [Suspect]
     Indication: STEM CELL TRANSPLANT
     Dosage: 90MGM2 PER DAY
     Route: 042
     Dates: start: 20041107, end: 20041108
  5. METHOTREXATE [Concomitant]
     Indication: IMMUNOSUPPRESSION
     Dosage: 10MGM2 PER DAY
     Route: 065
     Dates: start: 20041111, end: 20041116
  6. ALEVIATIN [Concomitant]
     Dosage: 40MG PER DAY
     Route: 042
     Dates: end: 20041108
  7. FLUMARIN [Concomitant]
     Dosage: .5G PER DAY
     Route: 042
     Dates: end: 20041108
  8. TACROLIMUS HYDRATE [Concomitant]
     Indication: IMMUNOSUPPRESSION
     Dosage: .02MGK PER DAY
     Route: 065
     Dates: start: 20041109
  9. BUSULFAN [Suspect]
     Indication: STEM CELL TRANSPLANT
     Dosage: 42MGM2 PER DAY
     Route: 042
     Dates: start: 20041103, end: 20041106
  10. GRAN [Suspect]
     Route: 065
     Dates: start: 20041116, end: 20041210

REACTIONS (1)
  - MUCOUS MEMBRANE DISORDER [None]
